FAERS Safety Report 24609252 (Version 5)
Quarter: 2025Q1

REPORT INFORMATION
  Report Type: Spontaneous
  Country: US (occurrence: US)
  Receive Date: 20241112
  Receipt Date: 20250109
  Transmission Date: 20250408
  Serious: No
  Sender: PFIZER
  Company Number: US-PFIZER INC-PV202300129185

PATIENT
  Age: 68 Year
  Sex: Male

DRUGS (1)
  1. GENOTROPIN [Suspect]
     Active Substance: SOMATROPIN
     Dosage: INJECTION, 0.3MG, UNDER THE SKIN DAILY, SEVEN DAYS A WEEK
     Route: 058
     Dates: start: 2023

REACTIONS (4)
  - Device use error [Unknown]
  - Device breakage [Unknown]
  - Device material issue [Unknown]
  - Drug dose omission by device [Unknown]
